FAERS Safety Report 4468289-0 (Version None)
Quarter: 2004Q4

REPORT INFORMATION
  Report Type: 
  Country: None (occurrence: None)
  Receive Date: 20041007
  Receipt Date: 20040924
  Transmission Date: 20050328
  Serious: Yes (Life-Threatening, Congenital Anomaly)
  Sender: FDA-Public Use
  Company Number: JP-ROCHE-381299

PATIENT
  Sex: Female
  Weight: 1.7 kg

DRUGS (3)
  1. RIVOTRIL [Suspect]
     Indication: EPILEPSY
     Route: 064
     Dates: end: 19990417
  2. VALPROATE SODIUM [Suspect]
     Indication: EPILEPSY
     Route: 064
     Dates: end: 19990417
  3. EXCEGRAN [Suspect]
     Indication: EPILEPSY
     Dates: end: 19990417

REACTIONS (6)
  - CLEFT LIP AND PALATE [None]
  - DRUG EXPOSURE DURING PREGNANCY [None]
  - NEONATAL ASPHYXIA [None]
  - PREGNANCY [None]
  - PREMATURE BABY [None]
  - UTERINE LEIOMYOMA [None]
